FAERS Safety Report 9100075 (Version 1)
Quarter: 2013Q1

REPORT INFORMATION
  Report Type: Report from Study
  Country: CH (occurrence: CH)
  Receive Date: 20130215
  Receipt Date: 20130215
  Transmission Date: 20140127
  Serious: Yes (Life-Threatening, Hospitalization)
  Sender: FDA-Public Use
  Company Number: CH-CELGENEUS-151-C4047-12032900

PATIENT
  Age: 60 Year
  Sex: Female
  Weight: 59 kg

DRUGS (14)
  1. CC-4047 [Suspect]
     Indication: PLASMA CELL MYELOMA
     Dosage: 4 MILLIGRAM
     Route: 048
     Dates: start: 20120130
  2. CC-4047 [Suspect]
     Dosage: 4 MILLIGRAM
     Route: 048
     Dates: start: 20120327
  3. DEXAMETHASONE [Suspect]
     Indication: PLASMA CELL MYELOMA
     Dosage: 40 MILLIGRAM
     Route: 065
     Dates: start: 20120130
  4. DEXAMETHASONE [Suspect]
     Dosage: 40 MILLIGRAM
     Route: 065
     Dates: start: 20120327
  5. ASPIRINE [Concomitant]
     Indication: THROMBOSIS PROPHYLAXIS
     Dosage: 100 MILLIGRAM
     Route: 048
     Dates: start: 20120130
  6. VALTREX [Concomitant]
     Indication: PROPHYLAXIS
     Dosage: 500 MILLIGRAM
     Route: 048
     Dates: start: 2003
  7. BENADON [Concomitant]
     Indication: POLYNEUROPATHY
     Dosage: 300 MILLIGRAM
     Route: 048
     Dates: start: 20120130
  8. OMEZOL [Concomitant]
     Indication: GASTROOESOPHAGEAL REFLUX DISEASE
     Dosage: 40 MILLIGRAM
     Route: 048
     Dates: start: 20120227
  9. ZOMETA [Concomitant]
     Indication: BONE PAIN
     Dosage: 3 MILLIGRAM
     Route: 041
     Dates: start: 20120227
  10. CYMBALTA [Concomitant]
     Indication: DEPRESSION
     Dosage: 60 MILLIGRAM
     Route: 048
     Dates: start: 20120322
  11. LYRICA [Concomitant]
     Indication: POLYNEUROPATHY
     Dosage: 50 MILLIGRAM
     Route: 048
  12. LYRICA [Concomitant]
     Indication: ANALGESIC THERAPY
     Route: 048
  13. DAFALGAN [Concomitant]
     Indication: ANALGESIC THERAPY
     Route: 048
     Dates: start: 20120322
  14. TEMESTA [Concomitant]
     Indication: SLEEP DISORDER
     Route: 048
     Dates: start: 20120322

REACTIONS (1)
  - Febrile neutropenia [Recovered/Resolved]
